FAERS Safety Report 7686158-X (Version None)
Quarter: 2011Q3

REPORT INFORMATION
  Report Type: 
  Country: None (occurrence: None)
  Receive Date: 20110816
  Receipt Date: 20110802
  Transmission Date: 20111222
  Serious: Yes (Other)
  Sender: FDA-Public Use
  Company Number: DE-UCBSA-035098

PATIENT
  Age: 50 Year
  Sex: Male

DRUGS (9)
  1. CARBAMAZEPINE [Concomitant]
  2. VIMPAT [Suspect]
     Indication: EPILEPSY
     Dates: start: 20100501
  3. PREGABALIN [Concomitant]
  4. LEVETIRACETAM [Suspect]
     Indication: EPILEPSY
  5. LAMOTRIGINE [Concomitant]
  6. OXCARBAZEPINE [Concomitant]
  7. TOPIRAMATE [Concomitant]
  8. VIMPAT [Suspect]
  9. VALPROIC ACID [Concomitant]

REACTIONS (2)
  - MULTIPLE MYELOMA [None]
  - CONVULSION [None]
